FAERS Safety Report 6687836-1 (Version None)
Quarter: 2010Q2

REPORT INFORMATION
  Report Type: 
  Country: None (occurrence: None)
  Receive Date: 20100409
  Receipt Date: 20090831
  Transmission Date: 20101027
  Serious: Yes (Hospitalization)
  Sender: FDA-Public Use
  Company Number: 065

PATIENT
  Sex: Female
  Weight: 125.6464 kg

DRUGS (8)
  1. FAZACLO ODT [Suspect]
     Indication: SCHIZOPHRENIA, PARANOID TYPE
     Dosage: 400 MG PO DAILY
     Route: 048
     Dates: start: 20060802, end: 20060809
  2. LEXAPRO [Concomitant]
  3. WELLBUTRIN [Concomitant]
  4. GEODON [Concomitant]
  5. RISPERDAL [Concomitant]
  6. LISINIPRIL [Concomitant]
  7. GLUCOPHAGE [Concomitant]
  8. GLYBURIDE [Concomitant]

REACTIONS (2)
  - NAUSEA [None]
  - VOMITING [None]
